FAERS Safety Report 9436130 (Version 1)
Quarter: 2013Q3

REPORT INFORMATION
  Report Type: Report from Study
  Country: TH (occurrence: TH)
  Receive Date: 20130801
  Receipt Date: 20130801
  Transmission Date: 20140515
  Serious: Yes (Death)
  Sender: FDA-Public Use
  Company Number: TH-UCBSA-093644

PATIENT
  Age: 82 Year
  Sex: Male

DRUGS (4)
  1. LEVETIRACETAM [Suspect]
     Indication: STATUS EPILEPTICUS
     Dosage: LOADING DOSE: 1500 MG
     Route: 042
  2. LEVETIRACETAM [Suspect]
     Indication: STATUS EPILEPTICUS
     Dosage: MAINTENANCE DOSE: 2000 MG
     Route: 042
  3. DIAZEPAM [Concomitant]
     Dosage: UNKNOWN DOSE
  4. WARFARIN [Concomitant]

REACTIONS (1)
  - Death [Fatal]
